FAERS Safety Report 13420394 (Version 1)
Quarter: 2017Q2

REPORT INFORMATION
  Report Type: Spontaneous
  Country: US (occurrence: US)
  Receive Date: 20170407
  Receipt Date: 20170407
  Transmission Date: 20170830
  Serious: Yes (Hospitalization, Other)
  Sender: FDA-Public Use
  Company Number: US-ZYDUS-014490

PATIENT
  Age: 58 Year
  Sex: Female

DRUGS (22)
  1. PREDNISONE. [Suspect]
     Active Substance: PREDNISONE
     Indication: IMMUNOSUPPRESSANT DRUG THERAPY
     Route: 065
  2. CETIRIZINE [Concomitant]
     Active Substance: CETIRIZINE HYDROCHLORIDE
     Indication: PRODUCT USED FOR UNKNOWN INDICATION
     Route: 065
  3. KETAMINE [Concomitant]
     Active Substance: KETAMINE
     Indication: INDUCTION OF ANAESTHESIA
     Route: 065
  4. FENTANYL. [Concomitant]
     Active Substance: FENTANYL
     Indication: INDUCTION OF ANAESTHESIA
     Route: 042
  5. TRAMADOL. [Concomitant]
     Active Substance: TRAMADOL
     Indication: PAIN
     Route: 048
  6. MEPIVACAINE [Concomitant]
     Active Substance: MEPIVACAINE\MEPIVACAINE HYDROCHLORIDE
     Indication: PRODUCT USED FOR UNKNOWN INDICATION
     Route: 065
  7. HYDROXYCHLOROQUINE [Suspect]
     Active Substance: HYDROXYCHLOROQUINE
     Indication: IMMUNOSUPPRESSANT DRUG THERAPY
     Route: 065
  8. SALBUTAMOL [Concomitant]
     Active Substance: ALBUTEROL
     Indication: PRODUCT USED FOR UNKNOWN INDICATION
     Route: 065
  9. TERIPARATIDE [Concomitant]
     Active Substance: TERIPARATIDE
     Indication: PRODUCT USED FOR UNKNOWN INDICATION
     Route: 065
  10. MIDAZOLAM [Concomitant]
     Active Substance: MIDAZOLAM HYDROCHLORIDE
     Indication: INDUCTION OF ANAESTHESIA
     Route: 065
  11. CHLORHEXIDINE [Concomitant]
     Active Substance: CHLORHEXIDINE
     Indication: PRODUCT USED FOR UNKNOWN INDICATION
     Route: 065
  12. TRAMADOL. [Concomitant]
     Active Substance: TRAMADOL
     Indication: PRODUCT USED FOR UNKNOWN INDICATION
     Route: 065
  13. SULINDAC/SULINDAC SODIUM [Concomitant]
     Indication: PRODUCT USED FOR UNKNOWN INDICATION
     Route: 065
  14. ISOPROPANOL [Concomitant]
     Active Substance: ISOPROPANOLAMINE
     Indication: PRODUCT USED FOR UNKNOWN INDICATION
     Route: 065
  15. FENTANYL. [Concomitant]
     Active Substance: FENTANYL
     Indication: PAIN
     Route: 062
  16. GABAPENTIN. [Concomitant]
     Active Substance: GABAPENTIN
     Indication: PRODUCT USED FOR UNKNOWN INDICATION
     Route: 065
  17. RAMIPRIL. [Concomitant]
     Active Substance: RAMIPRIL
     Indication: PRODUCT USED FOR UNKNOWN INDICATION
     Route: 065
  18. VANCOMYCIN [Concomitant]
     Active Substance: VANCOMYCIN
     Indication: INFECTION PROPHYLAXIS
     Route: 042
  19. MISOPROSTOL. [Concomitant]
     Active Substance: MISOPROSTOL
     Indication: PRODUCT USED FOR UNKNOWN INDICATION
     Route: 065
  20. RANITIDINE. [Concomitant]
     Active Substance: RANITIDINE
     Indication: PRODUCT USED FOR UNKNOWN INDICATION
     Route: 065
  21. ROSUVASTATIN. [Concomitant]
     Active Substance: ROSUVASTATIN
     Indication: PRODUCT USED FOR UNKNOWN INDICATION
     Route: 065
  22. ROPIVACAINE [Concomitant]
     Active Substance: ROPIVACAINE
     Indication: PRODUCT USED FOR UNKNOWN INDICATION
     Route: 065

REACTIONS (11)
  - Necrotising fasciitis [Recovered/Resolved]
  - Pain [Recovered/Resolved]
  - Joint range of motion decreased [Recovered/Resolved]
  - Staphylococcal sepsis [Recovered/Resolved]
  - Tenderness [Recovered/Resolved]
  - Tachycardia [Recovered/Resolved]
  - Subcutaneous emphysema [Recovered/Resolved]
  - Emphysema [Recovered/Resolved]
  - Pyrexia [Recovered/Resolved]
  - Catheter site erythema [Recovered/Resolved]
  - Swelling [Recovered/Resolved]
